FAERS Safety Report 9499616 (Version 1)
Quarter: 2013Q1

REPORT INFORMATION
  Report Type: Spontaneous
  Country: US (occurrence: None)
  Receive Date: 20130107
  Receipt Date: 20130107
  Transmission Date: 20140127
  Serious: No
  Sender: FDA-Public Use
  Company Number: PHEH2012US022329

PATIENT
  Age: 63 Year
  Sex: Female

DRUGS (4)
  1. GILENYA ( FTY) CAPSULE, 0.5 MG [Suspect]
     Indication: MULTIPLE SCLEROSIS
     Route: 048
     Dates: start: 20110620, end: 20110718
  2. TOPAMAX ( TOPIRAMATE) [Concomitant]
  3. ZOLOFT ( SERTRALINE HYDROCHLORIDE) [Concomitant]
  4. PROVIGIL ( MODAFINIL) [Concomitant]

REACTIONS (15)
  - Haematochezia [None]
  - Rash [None]
  - Yellow skin [None]
  - Rash macular [None]
  - Pruritus generalised [None]
  - Burning sensation [None]
  - Urticaria [None]
  - Aphasia [None]
  - Crying [None]
  - Cough [None]
  - Back pain [None]
  - Vision blurred [None]
  - Headache [None]
  - Diarrhoea [None]
  - Expired drug administered [None]
